FAERS Safety Report 5086509-9 (Version None)
Quarter: 2006Q3

REPORT INFORMATION
  Report Type: 
  Country: None (occurrence: None)
  Receive Date: 20060821
  Receipt Date: 20060821
  Transmission Date: 20061208
  Serious: Yes (Hospitalization)
  Sender: FDA-Public Use
  Company Number: None

PATIENT
  Age: 79 Year
  Sex: Female

DRUGS (12)
  1. GEMFIBROZIL [Suspect]
     Indication: HYPERLIPIDAEMIA
     Dosage: 600MG    BID    PO
     Route: 048
     Dates: start: 20060301, end: 20060326
  2. SIMVASTATIN [Suspect]
     Indication: HYPERLIPIDAEMIA
     Dosage: 40MG  DAILY   PO
     Route: 048
     Dates: start: 20050201, end: 20060326
  3. TRICOR [Concomitant]
  4. COZAAR [Concomitant]
  5. NORVASC [Concomitant]
  6. TOPROL-XL [Concomitant]
  7. FUROSEMIDE [Concomitant]
  8. ASPIRIN [Concomitant]
  9. MULTI-VITAMIN [Concomitant]
  10. TUMS [Concomitant]
  11. GLUCOSAMINE [Concomitant]
  12. CHONDROITIN [Concomitant]

REACTIONS (1)
  - RHABDOMYOLYSIS [None]
